FAERS Safety Report 10714661 (Version 11)
Quarter: 2015Q4

REPORT INFORMATION
  Report Type: Spontaneous
  Country: US (occurrence: US)
  Receive Date: 20150115
  Receipt Date: 20151030
  Transmission Date: 20160304
  Serious: Yes (Hospitalization, Other)
  Sender: FDA-Public Use
  Company Number: US-UNITED THERAPEUTICS-UNT-2015-000077

PATIENT
  Age: 58 Year
  Sex: Female
  Weight: 87.53 kg

DRUGS (13)
  1. REMODULIN [Suspect]
     Active Substance: TREPROSTINIL
     Dosage: 0.0095 ?G/KG, CONTINUING
     Route: 058
  2. REVATIO [Concomitant]
     Active Substance: SILDENAFIL CITRATE
     Indication: PRODUCT USED FOR UNKNOWN INDICATION
  3. LOMOTIL [Concomitant]
     Active Substance: ATROPINE SULFATE\DIPHENOXYLATE HYDROCHLORIDE
     Indication: PRODUCT USED FOR UNKNOWN INDICATION
  4. TYLENOL [Concomitant]
     Active Substance: ACETAMINOPHEN
     Indication: PRODUCT USED FOR UNKNOWN INDICATION
  5. REMODULIN [Suspect]
     Active Substance: TREPROSTINIL
     Dosage: 0.009 ?G/KG, CONTINUING
     Route: 058
  6. FUROSEMIDE. [Concomitant]
     Active Substance: FUROSEMIDE
     Indication: PRODUCT USED FOR UNKNOWN INDICATION
  7. FLUOXETINE [Concomitant]
     Active Substance: FLUOXETINE HYDROCHLORIDE
     Indication: PRODUCT USED FOR UNKNOWN INDICATION
  8. METOPROLOL [Concomitant]
     Active Substance: METOPROLOL
     Indication: PRODUCT USED FOR UNKNOWN INDICATION
  9. ZOFRAN [Concomitant]
     Active Substance: ONDANSETRON HYDROCHLORIDE
     Indication: PRODUCT USED FOR UNKNOWN INDICATION
  10. REMODULIN [Suspect]
     Active Substance: TREPROSTINIL
     Dosage: 0.010 ?G/KG, CONTINUING
     Route: 058
  11. TYVASO [Suspect]
     Active Substance: TREPROSTINIL
     Indication: PULMONARY ARTERIAL HYPERTENSION
     Dosage: 18-54 ?G, QID
     Dates: start: 20141007, end: 20141215
  12. ASPIRIN                            /00002701/ [Concomitant]
     Active Substance: ASPIRIN
     Indication: PRODUCT USED FOR UNKNOWN INDICATION
  13. REMODULIN [Suspect]
     Active Substance: TREPROSTINIL
     Indication: PULMONARY ARTERIAL HYPERTENSION
     Dosage: 0.006 ?G/KG, CONTINUING
     Route: 058
     Dates: start: 20141224

REACTIONS (35)
  - Anxiety [Not Recovered/Not Resolved]
  - Decreased appetite [Recovering/Resolving]
  - Depression [Recovered/Resolved]
  - Blood pressure decreased [Recovered/Resolved]
  - Pain in jaw [Not Recovered/Not Resolved]
  - Cough [Not Recovered/Not Resolved]
  - Pyrexia [Recovered/Resolved]
  - Sneezing [Unknown]
  - Respiratory tract infection viral [Recovered/Resolved]
  - Nausea [Recovered/Resolved]
  - Neck pain [Recovered/Resolved]
  - Abdominal distension [Recovering/Resolving]
  - Tremor [Unknown]
  - Fatigue [Unknown]
  - Device dislocation [Recovered/Resolved]
  - Pulmonary arterial hypertension [Not Recovered/Not Resolved]
  - Dizziness [Unknown]
  - Infusion site pain [Recovered/Resolved]
  - Confusional state [Recovered/Resolved]
  - Amnesia [Not Recovered/Not Resolved]
  - Diarrhoea [Recovered/Resolved]
  - Headache [Not Recovered/Not Resolved]
  - Contusion [Unknown]
  - Drug dose omission [Recovered/Resolved]
  - Musculoskeletal pain [Recovered/Resolved]
  - Eating disorder symptom [Recovering/Resolving]
  - Loss of consciousness [Recovered/Resolved]
  - Abdominal discomfort [Recovering/Resolving]
  - Dehydration [Unknown]
  - Asthenia [Unknown]
  - Epistaxis [Unknown]
  - Pain [Recovering/Resolving]
  - Infusion site erythema [Unknown]
  - Rubber sensitivity [Unknown]
  - Drug ineffective [Unknown]

NARRATIVE: CASE EVENT DATE: 2014
